FAERS Safety Report 10561345 (Version 1)
Quarter: 2014Q4

REPORT INFORMATION
  Report Type: Spontaneous
  Country: US (occurrence: US)
  Receive Date: 20141103
  Receipt Date: 20141103
  Transmission Date: 20150529
  Serious: No
  Sender: FDA-Public Use
  Company Number: US-ELI_LILLY_AND_COMPANY-US201410003572

PATIENT
  Sex: Female

DRUGS (1)
  1. CYMBALTA [Suspect]
     Active Substance: DULOXETINE HYDROCHLORIDE
     Indication: DEPRESSION
     Dosage: 60 MG, UNKNOWN
     Route: 065

REACTIONS (6)
  - Emotional distress [Unknown]
  - Crying [Unknown]
  - Diarrhoea [Unknown]
  - Feeling abnormal [Unknown]
  - Intentional product misuse [Unknown]
  - Drug withdrawal syndrome [Unknown]
